FAERS Safety Report 15255033 (Version 1)
Quarter: 2018Q3

REPORT INFORMATION
  Report Type: Report from Study
  Country: US (occurrence: US)
  Receive Date: 20180808
  Receipt Date: 20180808
  Transmission Date: 20181010
  Serious: Yes (Death, Other)
  Sender: FDA-Public Use
  Company Number: US-JNJFOC-20180541754

PATIENT
  Sex: Female

DRUGS (24)
  1. ALBUTEROL SULFATE. [Concomitant]
     Active Substance: ALBUTEROL SULFATE
  2. CLONIDINE. [Concomitant]
     Active Substance: CLONIDINE
  3. CYANOCOBALAMIN. [Concomitant]
     Active Substance: CYANOCOBALAMIN
  4. LEVOXYL [Concomitant]
     Active Substance: LEVOTHYROXINE SODIUM
  5. OXYBUTYNIN CHLORIDE. [Concomitant]
     Active Substance: OXYBUTYNIN CHLORIDE
  6. TRIAMCINOLONE [Concomitant]
     Active Substance: TRIAMCINOLONE
  7. KENALOG [Concomitant]
     Active Substance: TRIAMCINOLONE ACETONIDE
  8. KLOR?CON [Concomitant]
     Active Substance: POTASSIUM CHLORIDE
  9. PROMETHAZINE HCL [Concomitant]
     Active Substance: PROMETHAZINE HYDROCHLORIDE
  10. FLUCONAZOLE. [Concomitant]
     Active Substance: FLUCONAZOLE
  11. TRIMETHOBENZAMIDE [Concomitant]
     Active Substance: TRIMETHOBENZAMIDE
  12. NEOMYCIN W/POLYMYXIN [Concomitant]
  13. IMBRUVICA [Suspect]
     Active Substance: IBRUTINIB
     Indication: CHRONIC LYMPHOCYTIC LEUKAEMIA
     Route: 048
     Dates: start: 20180519
  14. IMBRUVICA [Suspect]
     Active Substance: IBRUTINIB
     Indication: LYMPHOCYTIC LEUKAEMIA
     Route: 048
     Dates: start: 20180519
  15. AMLODIPINE [Concomitant]
     Active Substance: AMLODIPINE BESYLATE
  16. LASIX [Concomitant]
     Active Substance: FUROSEMIDE
  17. HYDRALAZINE [Concomitant]
     Active Substance: HYDRALAZINE HYDROCHLORIDE
  18. LATANOPROST. [Concomitant]
     Active Substance: LATANOPROST
  19. FLUTICASONE PROPIONATE. [Concomitant]
     Active Substance: FLUTICASONE PROPIONATE
  20. PRILOSEC [Concomitant]
     Active Substance: OMEPRAZOLE MAGNESIUM
  21. SUCRALFATE. [Concomitant]
     Active Substance: SUCRALFATE
  22. ALPRAZOLAM. [Concomitant]
     Active Substance: ALPRAZOLAM
  23. TYLENOL WITH CODEINE [Concomitant]
     Active Substance: ACETAMINOPHEN\CODEINE PHOSPHATE
  24. ZOFRAN [Concomitant]
     Active Substance: ONDANSETRON HYDROCHLORIDE

REACTIONS (7)
  - Diarrhoea [Recovered/Resolved]
  - Dysphonia [Unknown]
  - Dizziness [Not Recovered/Not Resolved]
  - Nasopharyngitis [Unknown]
  - Thrombotic thrombocytopenic purpura [Fatal]
  - Acute kidney injury [Fatal]
  - Peripheral swelling [Unknown]
